FAERS Safety Report 19712811 (Version 1)
Quarter: 2021Q3

REPORT INFORMATION
  Report Type: Spontaneous
  Country: DE (occurrence: DE)
  Receive Date: 20210817
  Receipt Date: 20210817
  Transmission Date: 20211014
  Serious: No
  Sender: FDA-Public Use
  Company Number: DE-JAZZ-2021-DE-013091

PATIENT
  Sex: Female

DRUGS (5)
  1. AAS [Concomitant]
     Active Substance: ASPIRIN
  2. FLUOXETINE [Concomitant]
     Active Substance: FLUOXETINE HYDROCHLORIDE
  3. QUETIAPINE. [Concomitant]
     Active Substance: QUETIAPINE
  4. ZEPZELCA [Suspect]
     Active Substance: LURBINECTEDIN
     Indication: SMALL CELL LUNG CANCER EXTENSIVE STAGE
     Dosage: 3.2 MILLIGRAM/SQ. METER
     Route: 042
     Dates: start: 2020
  5. TRELEGY ELLIPTA [Concomitant]
     Active Substance: FLUTICASONE FUROATE\UMECLIDINIUM BROMIDE\VILANTEROL TRIFENATATE
     Dosage: UNK

REACTIONS (1)
  - Alanine aminotransferase increased [Unknown]
